FAERS Safety Report 7427058-X (Version None)
Quarter: 2011Q2

REPORT INFORMATION
  Report Type: 
  Country: None (occurrence: None)
  Receive Date: 20110420
  Receipt Date: 20110412
  Transmission Date: 20111010
  Serious: Yes (Hospitalization)
  Sender: FDA-Public Use
  Company Number: PHHY2010US70639

PATIENT
  Sex: Male
  Weight: 93 kg

DRUGS (5)
  1. EPOETIN NOS [Concomitant]
     Indication: MYELODYSPLASTIC SYNDROME
     Dosage: 60000 U, QW
     Route: 058
     Dates: start: 20100405, end: 20101129
  2. EXJADE [Suspect]
     Indication: IRON OVERLOAD
  3. LENALIDOMIDE [Concomitant]
     Indication: MYELODYSPLASTIC SYNDROME
     Dosage: 10 MG, DAILY
     Route: 048
     Dates: start: 20100405, end: 20101014
  4. PANTOPRAZOLE [Concomitant]
     Indication: GASTROOESOPHAGEAL REFLUX DISEASE
     Dosage: 1 DF, DAILY
     Route: 048
  5. EXJADE [Suspect]
     Indication: MYELODYSPLASTIC SYNDROME
     Dosage: 1875 MG, QD
     Route: 048
     Dates: start: 20100729, end: 20100920

REACTIONS (1)
  - CELLULITIS [None]
